FAERS Safety Report 9117926 (Version 1)
Quarter: 2013Q1

REPORT INFORMATION
  Report Type: Spontaneous
  Country: IN (occurrence: IN)
  Receive Date: 20130225
  Receipt Date: 20130225
  Transmission Date: 20140127
  Serious: Yes (Hospitalization)
  Sender: FDA-Public Use
  Company Number: PHHY2013IN016700

PATIENT
  Sex: 0

DRUGS (4)
  1. ISONIAZID [Suspect]
     Indication: TUBERCULOSIS
     Dosage: 5 MG/KG, UNK
  2. RIFAMPICIN [Suspect]
     Indication: TUBERCULOSIS
     Dosage: 10 MG/KG, UNK
  3. ETHAMBUTOL [Suspect]
     Indication: TUBERCULOSIS
     Dosage: 20 MG/KG, UNK
  4. PYRAZINAMIDE [Suspect]
     Indication: TUBERCULOSIS
     Dosage: 30 MG/KG, UNK

REACTIONS (10)
  - Paradoxical drug reaction [Recovered/Resolved]
  - Neonatal respiratory distress syndrome [Recovered/Resolved]
  - Pyrexia [Recovered/Resolved]
  - Cough [Recovered/Resolved]
  - Feeding disorder [Recovered/Resolved]
  - Rhonchi [Recovered/Resolved]
  - Tachypnoea [Recovered/Resolved]
  - Hilar lymphadenopathy [Recovered/Resolved]
  - Haemoglobin decreased [Recovered/Resolved]
  - White blood cell count increased [Recovered/Resolved]
